FAERS Safety Report 8548364-1 (Version None)
Quarter: 2012Q3

REPORT INFORMATION
  Report Type: 
  Country: None (occurrence: None)
  Receive Date: 20120711
  Receipt Date: 20120702
  Transmission Date: 20120928
  Serious: Yes (Life-Threatening, Hospitalization, Other)
  Sender: FDA-Public Use
  Company Number: 2012MA008168

PATIENT
  Age: 3 Year
  Sex: Female
  Weight: 14.4 kg

DRUGS (2)
  1. ACETAMINOPHEN AND CODEINE PHOSPHATE [Suspect]
     Indication: TONSILLECTOMY
     Dosage: 15 MG;Q4H;
  2. CODEINE SYRUP [Concomitant]

REACTIONS (6)
  - OXYGEN SATURATION DECREASED [None]
  - HAEMATEMESIS [None]
  - CYP2D6 POLYMORPHISM [None]
  - RESPIRATORY DEPRESSION [None]
  - UNRESPONSIVE TO STIMULI [None]
  - PYREXIA [None]
